FAERS Safety Report 8532943-1 (Version None)
Quarter: 2012Q3

REPORT INFORMATION
  Report Type: 
  Country: None (occurrence: None)
  Receive Date: 20120724
  Receipt Date: 20120712
  Transmission Date: 20120928
  Serious: Yes (Other)
  Sender: FDA-Public Use
  Company Number: DE-JNJFOC-20120707589

PATIENT

DRUGS (3)
  1. POSACONAZOLE [Suspect]
     Indication: ANTIFUNGAL PROPHYLAXIS
     Route: 048
  2. ITRACONAZOLE [Suspect]
     Indication: ANTIFUNGAL PROPHYLAXIS
     Route: 048
  3. DIFLUCAN [Suspect]
     Indication: ANTIFUNGAL PROPHYLAXIS
     Route: 048

REACTIONS (9)
  - ASPERGILLOSIS [None]
  - LIVER DISORDER [None]
  - SYSTEMIC MYCOSIS [None]
  - JAUNDICE [None]
  - DIPLOPIA [None]
  - HYPERBILIRUBINAEMIA [None]
  - ELECTROCARDIOGRAM QT PROLONGED [None]
  - DIARRHOEA [None]
  - SYNCOPE [None]
